FAERS Safety Report 6498106-9 (Version None)
Quarter: 2009Q4

REPORT INFORMATION
  Report Type: 
  Country: None (occurrence: None)
  Receive Date: 20091215
  Receipt Date: 20091207
  Transmission Date: 20100525
  Serious: Yes (Death)
  Sender: FDA-Public Use
  Company Number: US-NAPPMUNDI-GBR-2009-0005930

PATIENT
  Age: 40 Year
  Sex: Male

DRUGS (1)
  1. DILAUDID-HP [Suspect]
     Indication: OROPHARYNGEAL PAIN
     Dosage: 2 MG, TID
     Route: 042

REACTIONS (3)
  - INCORRECT DOSE ADMINISTERED [None]
  - NERVOUS SYSTEM DISORDER [None]
  - RESPIRATORY ARREST [None]
